FAERS Safety Report 9492047 (Version 2)
Quarter: 2013Q4

REPORT INFORMATION
  Report Type: Report from Study
  Country: AR (occurrence: AR)
  Receive Date: 20130830
  Receipt Date: 20131003
  Transmission Date: 20140711
  Serious: Yes (Other)
  Sender: FDA-Public Use
  Company Number: PHHY2013AR094740

PATIENT
  Sex: Female

DRUGS (2)
  1. DIOVAN [Suspect]
     Indication: HYPERTENSION
     Dosage: 2 DF(160MG), A DAY
     Route: 048
  2. DIOVAN [Suspect]
     Dosage: 2 DF(160MG), DAILY
     Route: 048

REACTIONS (1)
  - Pneumonia [Recovered/Resolved]
